FAERS Safety Report 5169371-5 (Version None)
Quarter: 2006Q4

REPORT INFORMATION
  Report Type: 
  Country: None (occurrence: None)
  Receive Date: 20061201
  Receipt Date: 20061121
  Transmission Date: 20070319
  Serious: Yes (Hospitalization)
  Sender: FDA-Public Use
  Company Number: 2006-05920

PATIENT
  Age: 43 Year
  Sex: Female

DRUGS (8)
  1. PREDNISONE [Suspect]
     Indication: EXPOSURE TO TOXIC AGENT
     Dosage: TAPERED DOSE DAILY, X 7 DAYS, ORAL
     Route: 048
     Dates: start: 20061019, end: 20061025
  2. METHYLPREDNISOLONE [Suspect]
     Indication: VERTIGO
     Dosage: TAPERED DOSE DAILY X 7 DAYS, ORAL
     Route: 048
     Dates: start: 20061107, end: 20061113
  3. LORAZEPAM [Suspect]
     Indication: VERTIGO
     Dosage: ORAL
     Route: 048
     Dates: start: 20061028, end: 20061031
  4. MECLIZINE [Suspect]
     Indication: VERTIGO
     Dates: start: 20061028, end: 20061031
  5. DIAZEPAM [Suspect]
     Indication: VERTIGO
     Dosage: ORAL
     Route: 048
     Dates: start: 20061101, end: 20061106
  6. FLUOXETINE [Concomitant]
  7. PRILOSEC [Concomitant]
  8. ESSIAN TABS [Concomitant]

REACTIONS (16)
  - BLOOD PRESSURE DECREASED [None]
  - CONVERSION DISORDER [None]
  - DEPRESSION [None]
  - DIZZINESS [None]
  - DRUG INEFFECTIVE [None]
  - FATIGUE [None]
  - HEADACHE [None]
  - HEART RATE DECREASED [None]
  - INSOMNIA [None]
  - LETHARGY [None]
  - LOSS OF CONSCIOUSNESS [None]
  - NAUSEA [None]
  - POOR QUALITY SLEEP [None]
  - RETCHING [None]
  - SYNCOPE [None]
  - VERTIGO [None]
